FAERS Safety Report 4275509-4 (Version None)
Quarter: 2004Q1

REPORT INFORMATION
  Report Type: 
  Country: None (occurrence: None)
  Receive Date: 20040121
  Receipt Date: 20040113
  Transmission Date: 20041129
  Serious: Yes (Other)
  Sender: FDA-Public Use
  Company Number: US-GLAXOSMITHKLINE-A0492905A

PATIENT
  Sex: Female

DRUGS (1)
  1. PAXIL CR [Suspect]

REACTIONS (1)
  - ABORTION SPONTANEOUS [None]
